FAERS Safety Report 12432487 (Version 1)
Quarter: 2016Q2

REPORT INFORMATION
  Report Type: Spontaneous
  Country: US (occurrence: US)
  Receive Date: 20160603
  Receipt Date: 20160603
  Transmission Date: 20160815
  Serious: Yes (Other)
  Sender: FDA-Public Use
  Company Number: US-DSJP-DSU-2015-121179

PATIENT
  Age: 66 Year
  Sex: Female
  Weight: 77.56 kg

DRUGS (4)
  1. BENICAR [Suspect]
     Active Substance: OLMESARTAN MEDOXOMIL
     Indication: PRODUCT USED FOR UNKNOWN INDICATION
     Dosage: UNK
     Dates: start: 201012
  2. SYNTHROID [Concomitant]
     Active Substance: LEVOTHYROXINE SODIUM
     Indication: PRODUCT USED FOR UNKNOWN INDICATION
     Dosage: UNK
     Dates: start: 201302
  3. BENICAR HCT [Suspect]
     Active Substance: HYDROCHLOROTHIAZIDE\OLMESARTAN MEDOXOMIL
     Indication: HYPERTENSION
     Dosage: 40/12.5
     Dates: start: 201006, end: 201406
  4. ARICEPT [Concomitant]
     Active Substance: DONEPEZIL HYDROCHLORIDE
     Indication: PRODUCT USED FOR UNKNOWN INDICATION
     Dosage: UNK
     Dates: start: 201309

REACTIONS (8)
  - Duodenitis [Unknown]
  - Constipation [Not Recovered/Not Resolved]
  - Faeces pale [Unknown]
  - Emotional distress [Unknown]
  - Anaemia [Unknown]
  - Malabsorption [Recovering/Resolving]
  - Ileal ulcer [Unknown]
  - Decreased appetite [Unknown]

NARRATIVE: CASE EVENT DATE: 201309
